FAERS Safety Report 23676511 (Version 5)
Quarter: 2024Q2

REPORT INFORMATION
  Report Type: Report from Study
  Country: US (occurrence: US)
  Receive Date: 20240327
  Receipt Date: 20240628
  Transmission Date: 20240715
  Serious: Yes (Other)
  Sender: FDA-Public Use
  Company Number: US-UNITED THERAPEUTICS-UNT-2024-008111

PATIENT
  Sex: Female

DRUGS (9)
  1. TREPROSTINIL [Suspect]
     Active Substance: TREPROSTINIL
     Indication: Pulmonary arterial hypertension
     Dosage: 1.875 MG (1 TABLET OF 1 MG AND 0.125 MG EACH AND 3 TABLETS OF 0.25 MG), TID
     Dates: start: 2024, end: 2024
  2. TREPROSTINIL [Suspect]
     Active Substance: TREPROSTINIL
     Dosage: 2.125 MG, TID
     Dates: start: 2024, end: 20240403
  3. TREPROSTINIL [Suspect]
     Active Substance: TREPROSTINIL
     Dosage: 2.25 MG (2 TABLETS OF 1 MG AND 1 TABLET OF 0.25 MG), TID
     Dates: start: 20240403, end: 20240408
  4. TREPROSTINIL [Suspect]
     Active Substance: TREPROSTINIL
     Dosage: 2.125 MG (2 TABLETS OF 1 MG AND 1 TABLET OF 0.125 MG), TID
     Dates: start: 20240408, end: 2024
  5. TREPROSTINIL [Suspect]
     Active Substance: TREPROSTINIL
     Dosage: 2.375 MG (2 TABLETS OF 1 MG AND 1 TABLET OF 0.25 MG AND 0.125 MG EACH), TID
     Dates: start: 2024, end: 2024
  6. TREPROSTINIL [Suspect]
     Active Substance: TREPROSTINIL
     Dosage: UNK
  7. ORENITRAM [Suspect]
     Active Substance: TREPROSTINIL
     Indication: Pulmonary arterial hypertension
     Dosage: UNK
  8. ORENITRAM [Suspect]
     Active Substance: TREPROSTINIL
     Indication: Pulmonary arterial hypertension
     Dosage: UNK
  9. ORENITRAM [Suspect]
     Active Substance: TREPROSTINIL
     Indication: Pulmonary arterial hypertension
     Dosage: UNK

REACTIONS (9)
  - Melaena [Not Recovered/Not Resolved]
  - Abdominal pain upper [Unknown]
  - Nausea [Unknown]
  - Arthralgia [Not Recovered/Not Resolved]
  - Musculoskeletal discomfort [Unknown]
  - Diarrhoea [Unknown]
  - Headache [Not Recovered/Not Resolved]
  - Pain [Not Recovered/Not Resolved]
  - Abdominal distension [Unknown]

NARRATIVE: CASE EVENT DATE: 20240101
